FAERS Safety Report 8070976-2 (Version None)
Quarter: 2012Q1

REPORT INFORMATION
  Report Type: 
  Country: None (occurrence: None)
  Receive Date: 20120125
  Receipt Date: 20120117
  Transmission Date: 20120608
  Serious: Yes (Hospitalization, Other)
  Sender: FDA-Public Use
  Company Number: US-MERCK-1107USA01805

PATIENT
  Age: 60 Year
  Sex: Female
  Weight: 70 kg

DRUGS (12)
  1. ACTONEL [Suspect]
     Indication: OSTEOPOROSIS
     Route: 047
     Dates: start: 20090801, end: 20100701
  2. ALENDRONATE SODIUM [Suspect]
     Indication: OSTEOPENIA
     Route: 048
     Dates: start: 20080101, end: 20090801
  3. FOSAMAX [Suspect]
     Route: 048
     Dates: start: 20000201
  4. ALENDRONATE SODIUM [Suspect]
     Indication: OSTEOPOROSIS
     Route: 048
     Dates: start: 20080101, end: 20090801
  5. ACTONEL [Suspect]
     Indication: OSTEOPENIA
     Route: 047
     Dates: start: 20090801, end: 20100701
  6. PREMPRO [Concomitant]
     Indication: MENOPAUSE
     Route: 048
     Dates: start: 19920101, end: 20030519
  7. FOSAMAX [Suspect]
     Route: 048
     Dates: start: 20000201
  8. ACTONEL [Suspect]
     Route: 047
     Dates: start: 20000101
  9. PREMPRO [Concomitant]
     Indication: HORMONE THERAPY
     Route: 048
     Dates: start: 19920101, end: 20030519
  10. FOSAMAX [Suspect]
     Indication: OSTEOPENIA
     Route: 048
     Dates: start: 20100218, end: 20100720
  11. FOSAMAX [Suspect]
     Indication: OSTEOPOROSIS
     Route: 048
     Dates: start: 20100218, end: 20100720
  12. ACTONEL [Suspect]
     Route: 047
     Dates: start: 20000101

REACTIONS (36)
  - HYPERLIPIDAEMIA [None]
  - FEELING JITTERY [None]
  - TRIGGER FINGER [None]
  - FEMUR FRACTURE [None]
  - HAEMORRHAGIC ANAEMIA [None]
  - LIGAMENT SPRAIN [None]
  - STRESS URINARY INCONTINENCE [None]
  - OSTEOARTHRITIS [None]
  - COLONIC POLYP [None]
  - BONE DISORDER [None]
  - MUSCLE INJURY [None]
  - ASTHENIA [None]
  - BREAST DISORDER [None]
  - CONCUSSION [None]
  - CONSTIPATION [None]
  - FRACTURE NONUNION [None]
  - SNORING [None]
  - POSTMENOPAUSAL HAEMORRHAGE [None]
  - OTITIS MEDIA [None]
  - CARPAL TUNNEL SYNDROME [None]
  - DEPRESSION [None]
  - ADVERSE DRUG REACTION [None]
  - HOT FLUSH [None]
  - BREAST CANCER IN SITU [None]
  - BLOOD PRESSURE INCREASED [None]
  - SUBARACHNOID HAEMORRHAGE [None]
  - TENOSYNOVITIS STENOSANS [None]
  - BREAST CYST [None]
  - LOW TURNOVER OSTEOPATHY [None]
  - HYPERTENSION [None]
  - PAIN IN EXTREMITY [None]
  - ECCHYMOSIS [None]
  - FALL [None]
  - URGE INCONTINENCE [None]
  - PLANTAR FASCIITIS [None]
  - BRONCHITIS [None]
